FAERS Safety Report 4649051-2 (Version None)
Quarter: 2005Q2

REPORT INFORMATION
  Report Type: 
  Country: None (occurrence: None)
  Receive Date: 20050429
  Receipt Date: 20050419
  Transmission Date: 20051028
  Serious: Yes (Life-Threatening, Hospitalization)
  Sender: FDA-Public Use
  Company Number: JP-JNJFOC-20050205999

PATIENT
  Age: 54 Year

DRUGS (3)
  1. RISPERDAL [Suspect]
     Route: 049
  2. HALOPERIDOL [Suspect]
     Indication: DRUG USE FOR UNKNOWN INDICATION
     Route: 042
  3. MIDAZOLAM HCL [Concomitant]
     Route: 042

REACTIONS (3)
  - BRADYCARDIA [None]
  - MEDICATION ERROR [None]
  - SINUS ARREST [None]
